FAERS Safety Report 5576517-3 (Version None)
Quarter: 2007Q4

REPORT INFORMATION
  Report Type: 
  Country: None (occurrence: None)
  Receive Date: 20071228
  Receipt Date: 20071227
  Transmission Date: 20080405
  Serious: Yes (Hospitalization)
  Sender: FDA-Public Use
  Company Number: B0487079A

PATIENT
  Age: 76 Year
  Sex: Female
  Weight: 53 kg

DRUGS (9)
  1. VALTREX [Suspect]
     Indication: HERPES ZOSTER
     Dosage: 500MG THREE TIMES PER DAY
     Route: 048
     Dates: start: 20070908, end: 20070909
  2. VALTREX [Suspect]
     Dosage: 1000MG THREE TIMES PER DAY
     Route: 048
     Dates: start: 20070910, end: 20070912
  3. VOLTAREN [Concomitant]
     Indication: PAIN
     Dosage: 75MG PER DAY
     Route: 048
     Dates: start: 20070910, end: 20070910
  4. SELBEX [Concomitant]
     Dosage: 150MG PER DAY
     Route: 048
     Dates: start: 20070910, end: 20070910
  5. BASEN [Concomitant]
     Indication: DIABETES MELLITUS
     Dosage: .6MG PER DAY
     Route: 048
  6. AMARYL [Concomitant]
     Indication: DIABETES MELLITUS
     Dosage: 4MG PER DAY
     Route: 048
  7. LIPITOR [Concomitant]
     Dosage: 10MG PER DAY
     Route: 048
     Dates: start: 20050207
  8. ACTOS [Concomitant]
     Indication: DIABETES MELLITUS
     Dosage: 15MG PER DAY
     Route: 048
  9. MICARDIS [Concomitant]
     Indication: HYPERTENSION
     Dosage: 40MG PER DAY
     Route: 048
     Dates: start: 20061023

REACTIONS (6)
  - FEELING ABNORMAL [None]
  - HEADACHE [None]
  - NAUSEA [None]
  - OVERDOSE [None]
  - RENAL FAILURE ACUTE [None]
  - VOMITING [None]
